FAERS Safety Report 25394050 (Version 1)
Quarter: 2025Q2

REPORT INFORMATION
  Report Type: Other
  Country: IL (occurrence: IL)
  Receive Date: 20250604
  Receipt Date: 20250604
  Transmission Date: 20250717
  Serious: Yes (Hospitalization, Other)
  Sender: ESJAY PHARMA
  Company Number: IL-ESJAY PHARMA-000708

PATIENT
  Age: 12 Month
  Sex: Female

DRUGS (7)
  1. FUROSEMIDE [Suspect]
     Active Substance: FUROSEMIDE
     Indication: Product used for unknown indication
  2. PIPERACILLIN SODIUM\TAZOBACTAM SODIUM [Concomitant]
     Active Substance: PIPERACILLIN SODIUM\TAZOBACTAM SODIUM
     Indication: Product used for unknown indication
  3. ACYCLOVIR [Concomitant]
     Active Substance: ACYCLOVIR
     Indication: Adenovirus infection
  4. CIDOFOVIR [Concomitant]
     Active Substance: CIDOFOVIR
     Indication: Acute kidney injury
  5. PROBENECID [Concomitant]
     Active Substance: PROBENECID
     Indication: Acute kidney injury
  6. SODIUM CHLORIDE [Concomitant]
     Active Substance: SODIUM CHLORIDE
     Indication: Hypervolaemia
  7. ACYCLOVIR [Concomitant]
     Active Substance: ACYCLOVIR
     Indication: Enterovirus infection

REACTIONS (2)
  - Nephropathy toxic [Recovered/Resolved]
  - Acute kidney injury [Recovered/Resolved]
